FAERS Safety Report 6370671-1 (Version None)
Quarter: 2009Q3

REPORT INFORMATION
  Report Type: 
  Country: None (occurrence: None)
  Receive Date: 20090923
  Receipt Date: 20080108
  Transmission Date: 20100115
  Serious: Yes (Hospitalization)
  Sender: FDA-Public Use
  Company Number: US-ASTRAZENECA-2006UW26542

PATIENT
  Age: 26 Year
  Sex: Female
  Weight: 98.4 kg

DRUGS (22)
  1. SEROQUEL [Suspect]
     Indication: ANXIETY
     Dosage: 75 TO 400 MG
     Route: 048
     Dates: start: 20020821
  2. SEROQUEL [Suspect]
     Indication: DEPRESSION
     Dosage: 75 TO 400 MG
     Route: 048
     Dates: start: 20020821
  3. SEROQUEL [Suspect]
     Indication: BIPOLAR DISORDER
     Dosage: 75 TO 400 MG
     Route: 048
     Dates: start: 20020821
  4. SEROQUEL [Suspect]
     Indication: PSYCHOTIC DISORDER
     Dosage: 75 TO 400 MG
     Route: 048
     Dates: start: 20020821
  5. SEROQUEL [Suspect]
     Indication: MOOD ALTERED
     Dosage: 75 TO 400 MG
     Route: 048
     Dates: start: 20020821
  6. SEROQUEL [Suspect]
     Route: 048
     Dates: start: 20050401
  7. SEROQUEL [Suspect]
     Route: 048
     Dates: start: 20050401
  8. SEROQUEL [Suspect]
     Route: 048
     Dates: start: 20050401
  9. SEROQUEL [Suspect]
     Route: 048
     Dates: start: 20050401
  10. SEROQUEL [Suspect]
     Route: 048
     Dates: start: 20050401
  11. AMBIEN [Concomitant]
     Indication: SLEEP DISORDER
     Route: 048
     Dates: start: 20020821
  12. AMBIEN [Concomitant]
     Indication: INSOMNIA
     Route: 048
     Dates: start: 20020821
  13. REMERON [Concomitant]
     Indication: SLEEP DISORDER
     Dates: start: 20020821
  14. REMERON [Concomitant]
     Indication: DEPRESSION
     Dates: start: 20020821
  15. LAMICTAL [Concomitant]
     Indication: SLEEP DISORDER
     Dosage: 25 TO 50 MG AT BEDTIME
     Route: 048
     Dates: start: 20040219
  16. TRAZODONE [Concomitant]
     Indication: SLEEP DISORDER
     Dates: start: 20050421
  17. TRAZODONE [Concomitant]
     Indication: MOOD ALTERED
     Dates: start: 20050421
  18. ENALAPRIL MALEATE [Concomitant]
     Indication: BLOOD PRESSURE
     Dates: start: 20050421
  19. LIPITOR [Concomitant]
     Indication: BLOOD CHOLESTEROL
     Dates: start: 20050421
  20. WELLBUTRIN SR [Concomitant]
     Indication: DEPRESSION
     Route: 048
     Dates: start: 20040219
  21. FLUOXETINE [Concomitant]
     Dates: start: 20070205
  22. LISINOPRIL [Concomitant]
     Dates: start: 20070205

REACTIONS (5)
  - DIABETES MELLITUS [None]
  - DIABETES MELLITUS INADEQUATE CONTROL [None]
  - DIABETIC KETOACIDOSIS [None]
  - TYPE 1 DIABETES MELLITUS [None]
  - TYPE 2 DIABETES MELLITUS [None]
